FAERS Safety Report 9520812 (Version 1)
Quarter: 2013Q1

REPORT INFORMATION
  Report Type: Spontaneous
  Country: US (occurrence: None)
  Receive Date: 20130305
  Receipt Date: 20130305
  Transmission Date: 20140127
  Serious: Yes (Other)
  Sender: FDA-Public Use
  Company Number: 163-21880-12103121

PATIENT
  Age: 84 Year
  Sex: Female
  Weight: 53.62 kg

DRUGS (3)
  1. REVLIMID [Suspect]
     Dosage: 15 MG, 21 IN 21 D, PO
     Route: 048
     Dates: start: 20121002
  2. DEXAMETHASONE ( DEXAMETHASONE) (UNKNOWN) [Concomitant]
  3. PREDNISONE ( PREDNISONE) ( UNKNOWN) [Concomitant]

REACTIONS (5)
  - Hypersensitivity [None]
  - Micturition urgency [None]
  - Rash generalised [None]
  - Erythema [None]
  - Pruritus [None]
